FAERS Safety Report 6458312-6 (Version None)
Quarter: 2009Q4

REPORT INFORMATION
  Report Type: 
  Country: None (occurrence: None)
  Receive Date: 20091125
  Receipt Date: 20091118
  Transmission Date: 20100525
  Serious: Yes (Other)
  Sender: FDA-Public Use
  Company Number: US-AMGEN-QUU375273

PATIENT
  Sex: Female

DRUGS (7)
  1. NEUPOGEN [Suspect]
     Indication: CHEMOTHERAPY
     Dates: start: 20091104
  2. TAXOL [Concomitant]
  3. CARBOPLATIN [Concomitant]
  4. VITAMINS [Concomitant]
  5. ZOFRAN [Concomitant]
  6. COMPAZINE [Concomitant]
  7. ASPIRIN [Concomitant]

REACTIONS (2)
  - BONE PAIN [None]
  - PARAESTHESIA [None]
